FAERS Safety Report 24041842 (Version 1)
Quarter: 2024Q3

REPORT INFORMATION
  Report Type: Spontaneous
  Country: CN (occurrence: CN)
  Receive Date: 20240702
  Receipt Date: 20240702
  Transmission Date: 20241016
  Serious: Yes (Hospitalization)
  Sender: PFIZER
  Company Number: CN-PFIZER INC-PV202400085725

PATIENT
  Age: 30 Year
  Sex: Male
  Weight: 52 kg

DRUGS (3)
  1. CYTARABINE [Suspect]
     Active Substance: CYTARABINE
     Indication: Chemotherapy
     Dosage: 3.2 G, 1X/DAY
     Route: 041
     Dates: start: 20240604, end: 20240605
  2. METHOTREXATE SODIUM [Suspect]
     Active Substance: METHOTREXATE SODIUM
     Indication: Chemotherapy
     Dosage: 1.6 G, 1X/DAY (PUMP INJECTION)
     Dates: start: 20240603, end: 20240603
  3. LEUCOVORIN CALCIUM [Concomitant]
     Active Substance: LEUCOVORIN CALCIUM
     Indication: Chemotherapy
     Dosage: 0.04 G, 1X/DAY
     Route: 041
     Dates: start: 20240605, end: 20240607

REACTIONS (2)
  - Myelosuppression [Recovering/Resolving]
  - Rash erythematous [Recovering/Resolving]

NARRATIVE: CASE EVENT DATE: 20240609
